FAERS Safety Report 25182519 (Version 1)
Quarter: 2025Q2

REPORT INFORMATION
  Report Type: Spontaneous
  Country: US (occurrence: US)
  Receive Date: 20250410
  Receipt Date: 20250410
  Transmission Date: 20250716
  Serious: No
  Sender: AMGEN
  Company Number: US-AMGEN-USASP2025068086

PATIENT
  Age: 60 Year
  Sex: Female

DRUGS (1)
  1. REPATHA [Suspect]
     Active Substance: EVOLOCUMAB
     Indication: Arteriosclerosis
     Route: 065
     Dates: start: 20250401

REACTIONS (3)
  - Diarrhoea [Unknown]
  - Influenza like illness [Unknown]
  - Nausea [Unknown]

NARRATIVE: CASE EVENT DATE: 20250403
